FAERS Safety Report 19281526 (Version 4)
Quarter: 2021Q3

REPORT INFORMATION
  Report Type: Report from Study
  Country: GB (occurrence: GB)
  Receive Date: 20210521
  Receipt Date: 20210917
  Transmission Date: 20211014
  Serious: Yes (Other)
  Sender: FDA-Public Use
  Company Number: GB-TAKEDA-2021TUS025443

PATIENT
  Age: 81 Year
  Sex: Female

DRUGS (1)
  1. VEDOLIZUMAB [Suspect]
     Active Substance: VEDOLIZUMAB
     Indication: CROHN^S DISEASE
     Dosage: 108 MILLIGRAM, Q2WEEKS
     Route: 058
     Dates: start: 20201224

REACTIONS (4)
  - Crohn^s disease [Unknown]
  - Wrong technique in product usage process [Unknown]
  - Lower respiratory tract infection [Unknown]
  - Incorrect dose administered [Unknown]
